FAERS Safety Report 4941794-6 (Version None)
Quarter: 2006Q1

REPORT INFORMATION
  Report Type: 
  Country: None (occurrence: None)
  Receive Date: 20060308
  Receipt Date: 20060301
  Transmission Date: 20060701
  Serious: Yes (Other)
  Sender: FDA-Public Use
  Company Number: 050108

PATIENT
  Age: 42 Year
  Sex: Male

DRUGS (7)
  1. HALFLYTELY [Suspect]
     Indication: COLONOSCOPY
     Dosage: 20 MG/2L, 1X, PO
     Route: 048
     Dates: start: 20050901
  2. ASPIRIN [Concomitant]
  3. NEUTONTIN [Concomitant]
  4. VYTORIN [Concomitant]
  5. LORTAB [Concomitant]
  6. HYZAAR [Concomitant]
  7. CLONIDINE [Concomitant]

REACTIONS (8)
  - ARTERIOVENOUS MALFORMATION [None]
  - COLITIS ISCHAEMIC [None]
  - COLON ADENOMA [None]
  - COLONIC POLYP [None]
  - HAEMORRHOIDS [None]
  - HYPOXIA [None]
  - NAUSEA [None]
  - PAIN [None]
